FAERS Safety Report 23236848 (Version 2)
Quarter: 2024Q1

REPORT INFORMATION
  Report Type: Report from Study
  Country: US (occurrence: US)
  Receive Date: 20231128
  Receipt Date: 20240131
  Transmission Date: 20240410
  Serious: Yes (Hospitalization)
  Sender: FDA-Public Use
  Company Number: US-BAYER-2023A138938

PATIENT
  Age: 64 Year
  Sex: Female
  Weight: 87.982 kg

DRUGS (6)
  1. ADEMPAS [Suspect]
     Active Substance: RIOCIGUAT
     Indication: Pulmonary arterial hypertension
     Dosage: UNK
     Route: 048
  2. ADEMPAS [Suspect]
     Active Substance: RIOCIGUAT
     Indication: Pulmonary arterial hypertension
     Dosage: 1 MG, TID
     Route: 048
  3. ADEMPAS [Suspect]
     Active Substance: RIOCIGUAT
     Indication: Pulmonary arterial hypertension
     Dosage: 1 MG, TID
     Route: 048
     Dates: start: 202307
  4. ADEMPAS [Suspect]
     Active Substance: RIOCIGUAT
     Indication: Pulmonary arterial hypertension
     Dosage: 1.5 MG, TID
     Dates: start: 202311
  5. VELETRI [Concomitant]
     Active Substance: EPOPROSTENOL
  6. OPSUMIT [Concomitant]
     Active Substance: MACITENTAN

REACTIONS (2)
  - Medical procedure [None]
  - Hospitalisation [None]

NARRATIVE: CASE EVENT DATE: 20231001
